FAERS Safety Report 8367168-6 (Version None)
Quarter: 2012Q2

REPORT INFORMATION
  Report Type: 
  Country: None (occurrence: None)
  Receive Date: 20120517
  Receipt Date: 20120509
  Transmission Date: 20120825
  Serious: Yes (Other)
  Sender: FDA-Public Use
  Company Number: US-ROXANE LABORATORIES, INC.-2012-RO-01207RO

PATIENT
  Age: 81 Year
  Sex: Female

DRUGS (4)
  1. ACTOS [Concomitant]
     Indication: DIABETES MELLITUS
  2. LOSARTAN POTASSIUM AND HYDROCHLOROTHIAZIDE [Suspect]
     Indication: HYPERTENSION
     Route: 048
  3. AMLODIPINE BESYLATE [Concomitant]
     Dosage: 5 MG
  4. ATENOLOL [Concomitant]
     Dosage: 20 MG

REACTIONS (1)
  - BLOOD PRESSURE DECREASED [None]
